FAERS Safety Report 21772834 (Version 1)
Quarter: 2022Q4

REPORT INFORMATION
  Report Type: Spontaneous
  Country: JP (occurrence: JP)
  Receive Date: 20221223
  Receipt Date: 20221223
  Transmission Date: 20230113
  Serious: Yes (Hospitalization, Other)
  Sender: FDA-Public Use
  Company Number: JP-teijin-202202497_FE_P_1

PATIENT
  Age: 70 Year
  Sex: Male

DRUGS (1)
  1. FEBUXOSTAT [Suspect]
     Active Substance: FEBUXOSTAT
     Indication: Hyperuricaemia
     Dosage: UNK
     Route: 048

REACTIONS (4)
  - Renal tubular necrosis [Recovered/Resolved]
  - Heat illness [Unknown]
  - Hypouricaemia [Unknown]
  - Overdose [Unknown]
